FAERS Safety Report 5623292-X (Version None)
Quarter: 2008Q1

REPORT INFORMATION
  Report Type: 
  Country: None (occurrence: None)
  Receive Date: 20080212
  Receipt Date: 20080204
  Transmission Date: 20080703
  Serious: Yes (Hospitalization)
  Sender: FDA-Public Use
  Company Number: US-JNJFOC-20080103004

PATIENT
  Sex: Female
  Weight: 127.46 kg

DRUGS (6)
  1. RISPERDAL CONSTA [Suspect]
     Route: 030
  2. RISPERDAL CONSTA [Suspect]
     Indication: BORDERLINE PERSONALITY DISORDER
     Route: 030
  3. CYMBALTA [Concomitant]
  4. SEROQUEL [Concomitant]
     Indication: BORDERLINE PERSONALITY DISORDER
  5. METFORMIN HCL [Concomitant]
     Indication: DIABETES MELLITUS
  6. PREVACID [Concomitant]

REACTIONS (1)
  - HOSPITALISATION [None]
